FAERS Safety Report 10922526 (Version 2)
Quarter: 2015Q1

REPORT INFORMATION
  Report Type: Report from Study
  Country: CH (occurrence: CH)
  Receive Date: 20150317
  Receipt Date: 20150327
  Transmission Date: 20150721
  Serious: Yes (Hospitalization)
  Sender: FDA-Public Use
  Company Number: CH-CELGENE-CHE-2015030620

PATIENT
  Age: 67 Year
  Sex: Female

DRUGS (17)
  1. CC-10004 [Suspect]
     Active Substance: APREMILAST
     Indication: PSORIATIC ARTHROPATHY
     Route: 048
  2. CC-10004 [Suspect]
     Active Substance: APREMILAST
     Indication: PSORIATIC ARTHROPATHY
  3. GLIMEPIRIDE. [Concomitant]
     Active Substance: GLIMEPIRIDE
     Indication: DIABETES MELLITUS
     Dosage: 15 DOSAGE FORMS
     Route: 048
     Dates: start: 20140202
  4. INSULIN [Concomitant]
     Active Substance: INSULIN NOS
     Indication: DIABETES MELLITUS
     Dosage: 15U
     Route: 058
     Dates: start: 20140202
  5. MELATONIN [Concomitant]
     Active Substance: MELATONIN
     Indication: INSOMNIA
     Dosage: 20 MILLIGRAM
     Route: 048
     Dates: start: 20140202
  6. CC-10004 [Suspect]
     Active Substance: APREMILAST
     Indication: INFLAMMATION
  7. METHOTREXATE [Concomitant]
     Active Substance: METHOTREXATE
     Indication: PSORIATIC ARTHROPATHY
     Dosage: 5 MILLIGRAM
     Route: 048
     Dates: start: 20140202
  8. STATICONCEPT [Concomitant]
     Indication: HYPERCHOLESTEROLAEMIA
     Route: 048
     Dates: start: 20140202
  9. CO-DIOVAN [Concomitant]
     Active Substance: HYDROCHLOROTHIAZIDE\VALSARTAN
     Indication: HYPERTENSION
     Dosage: 80/125
     Route: 048
     Dates: start: 20140517
  10. CC-10004 [Suspect]
     Active Substance: APREMILAST
     Indication: CHRONIC OBSTRUCTIVE PULMONARY DISEASE
  11. FOLIC ACID. [Concomitant]
     Active Substance: FOLIC ACID
     Indication: PROPHYLAXIS
     Route: 048
     Dates: start: 20140202
  12. FLUOXETINE [Concomitant]
     Active Substance: FLUOXETINE\FLUOXETINE HYDROCHLORIDE
     Indication: INSOMNIA
     Dosage: 1000 MICROGRAM
     Route: 048
     Dates: start: 20140202
  13. CC-10004 [Suspect]
     Active Substance: APREMILAST
     Indication: RHEUMATOID ARTHRITIS
  14. VICTOZA [Concomitant]
     Active Substance: LIRAGLUTIDE
     Indication: DIABETES MELLITUS
     Dosage: 300 MILLIGRAM
     Route: 058
     Dates: start: 20140202
  15. BILOL [Concomitant]
     Active Substance: BISOPROLOL
     Indication: TACHYCARDIA
     Dosage: 1.8 MILLIGRAM
     Route: 048
     Dates: start: 20140517
  16. HUMALOG [Concomitant]
     Active Substance: INSULIN LISPRO
     Indication: DIABETES MELLITUS
     Dosage: 15 U
     Route: 058
     Dates: start: 20140617
  17. VITAMIN B12 [Concomitant]
     Active Substance: CYANOCOBALAMIN
     Indication: VITAMIN SUPPLEMENTATION
     Dosage: 3 MILLIGRAM
     Route: 030
     Dates: start: 20140202

REACTIONS (1)
  - Impaired healing [Recovered/Resolved]

NARRATIVE: CASE EVENT DATE: 20150303
